FAERS Safety Report 12290636 (Version 1)
Quarter: 2016Q2

REPORT INFORMATION
  Report Type: Spontaneous
  Country: PL (occurrence: PL)
  Receive Date: 20160421
  Receipt Date: 20160421
  Transmission Date: 20160815
  Serious: Yes (Hospitalization)
  Sender: FDA-Public Use
  Company Number: PL-TEVA-650971ISR

PATIENT
  Age: 3 Year
  Sex: Male
  Weight: 17 kg

DRUGS (3)
  1. CECLOR [Suspect]
     Active Substance: CEFACLOR
     Indication: PHARYNGITIS
     Dosage: 9 ML DAILY; STRENGTH 125MG/5 ML
     Route: 048
     Dates: start: 20160326, end: 20160327
  2. LAKCID [Concomitant]
     Active Substance: LACTOBACILLUS ACIDOPHILUS
     Indication: PROBIOTIC THERAPY
  3. DEXA PICO [Concomitant]

REACTIONS (12)
  - Eyelid oedema [Recovered/Resolved]
  - Asthenia [Recovered/Resolved]
  - Chest pain [Unknown]
  - Erythema of eyelid [Recovered/Resolved]
  - Condition aggravated [Recovered/Resolved]
  - Joint swelling [Recovered/Resolved]
  - Chest X-ray abnormal [Unknown]
  - Arthralgia [Recovered/Resolved]
  - Dysstasia [Recovered/Resolved]
  - Erythema [Not Recovered/Not Resolved]
  - Urticaria [Recovered/Resolved]
  - Pyrexia [Recovered/Resolved]

NARRATIVE: CASE EVENT DATE: 2016
